FAERS Safety Report 26192247 (Version 2)
Quarter: 2025Q4

REPORT INFORMATION
  Report Type: Spontaneous
  Country: US (occurrence: US)
  Receive Date: 20251223
  Receipt Date: 20251226
  Transmission Date: 20260119
  Serious: No
  Sender: KARYOPHARM THERAPEUTICS
  Company Number: US-KARYOPHARM-2025KPT101087

PATIENT

DRUGS (24)
  1. SELINEXOR [Suspect]
     Active Substance: SELINEXOR
     Indication: Plasma cell myeloma
     Dosage: 60 MG ONCE WEEKLY
     Route: 048
     Dates: start: 20251215
  2. ACYCLOVIR [Concomitant]
     Active Substance: ACYCLOVIR
  3. ALPRAZOLAM [Concomitant]
     Active Substance: ALPRAZOLAM
  4. ASPIRIN [Concomitant]
     Active Substance: ASPIRIN
  5. BREYNA [Concomitant]
     Active Substance: BUDESONIDE\FORMOTEROL FUMARATE
  6. CARISOPRODOL [Concomitant]
     Active Substance: CARISOPRODOL
  7. CELECOXIB [Concomitant]
     Active Substance: CELECOXIB
  8. CLOPIDOGREL [Concomitant]
     Active Substance: CLOPIDOGREL BISULFATE
  9. DEXAMETHASONE [Concomitant]
     Active Substance: DEXAMETHASONE
  10. DYMISTA [Concomitant]
     Active Substance: AZELASTINE HYDROCHLORIDE\FLUTICASONE PROPIONATE
  11. ESOMEPRAZOLE [Concomitant]
     Active Substance: ESOMEPRAZOLE
  12. EZETIMIBE [Concomitant]
     Active Substance: EZETIMIBE
  13. FINASTERIDE [Concomitant]
     Active Substance: FINASTERIDE
  14. FLUTICASONE [Concomitant]
     Active Substance: FLUTICASONE
  15. KYPROLIS [Concomitant]
     Active Substance: CARFILZOMIB
  16. METOPROLOL [Concomitant]
     Active Substance: METOPROLOL
  17. NITROGLYCERIN [Concomitant]
     Active Substance: NITROGLYCERIN
  18. OLMESARTAN [Concomitant]
     Active Substance: OLMESARTAN
  19. OXYCODONE AND ACETAMINOPHEN [Concomitant]
     Active Substance: ACETAMINOPHEN\OXYCODONE HYDROCHLORIDE
  20. PSEUDOEPHEDRINE [Concomitant]
     Active Substance: PSEUDOEPHEDRINE
  21. ROSUVASTATIN [Concomitant]
     Active Substance: ROSUVASTATIN
  22. SERTRALINE [Concomitant]
     Active Substance: SERTRALINE HYDROCHLORIDE
  23. TRAZODONE [Concomitant]
     Active Substance: TRAZODONE HYDROCHLORIDE
  24. ZOLPIDEM [Concomitant]
     Active Substance: ZOLPIDEM TARTRATE

REACTIONS (5)
  - Night sweats [Unknown]
  - Nausea [Unknown]
  - Vomiting [Unknown]
  - Dyspnoea [Not Recovered/Not Resolved]
  - Decreased appetite [Unknown]

NARRATIVE: CASE EVENT DATE: 20251201
